FAERS Safety Report 14698404 (Version 1)
Quarter: 2018Q1

REPORT INFORMATION
  Report Type: Spontaneous
  Country: CA (occurrence: CA)
  Receive Date: 20180330
  Receipt Date: 20180330
  Transmission Date: 20180509
  Serious: Yes (Other)
  Sender: FDA-Public Use
  Company Number: CA-009507513-1803CAN011703

PATIENT
  Sex: Male

DRUGS (4)
  1. DUOTRAV [Concomitant]
     Active Substance: TIMOLOL MALEATE\TRAVOPROST
     Dosage: UNK
  2. FINASTERIDE SANDOZ [Concomitant]
     Dosage: UNK
  3. EYLEA [Concomitant]
     Active Substance: AFLIBERCEPT
     Indication: OCULAR RETROBULBAR HAEMORRHAGE
     Dosage: 3 SHOTS EVERY 4 WEEKS IN HIS LEFT EYE/6 WEEK INTERVAL/THEN EVERY 5 AND 6 WEEKS
     Route: 047
  4. DORZOLAMIDE HYDROCHLORIDE. [Suspect]
     Active Substance: DORZOLAMIDE HYDROCHLORIDE
     Indication: GLAUCOMA
     Dosage: 1 DROP IN EACH EYE, BID
     Route: 047

REACTIONS (4)
  - Visual impairment [Unknown]
  - Glaucoma [Unknown]
  - Drug interaction [Unknown]
  - Drug ineffective [Unknown]
